FAERS Safety Report 6373256-6 (Version None)
Quarter: 2009Q3

REPORT INFORMATION
  Report Type: 
  Country: None (occurrence: None)
  Receive Date: 20090924
  Receipt Date: 20090918
  Transmission Date: 20100115
  Serious: Yes (Life-Threatening, Hospitalization)
  Sender: FDA-Public Use
  Company Number: GB-JNJFOC-20090905465

PATIENT
  Age: 46 Year
  Sex: Male
  Weight: 80 kg

DRUGS (5)
  1. ETRAVIRINE [Suspect]
     Indication: DRUG USE FOR UNKNOWN INDICATION
     Route: 048
  2. DARUNAVIR [Concomitant]
     Route: 048
  3. RITONAVIR [Concomitant]
  4. RALTEGRAVIR [Concomitant]
  5. ACETAMINOPHEN [Concomitant]

REACTIONS (3)
  - ENCEPHALOPATHY [None]
  - HODGKIN'S DISEASE [None]
  - LIVER DISORDER [None]
